FAERS Safety Report 8369995-8 (Version None)
Quarter: 2012Q1

REPORT INFORMATION
  Report Type: 
  Country: None (occurrence: None)
  Receive Date: 20120323
  Receipt Date: 20110622
  Transmission Date: 20120608
  Serious: Yes (Hospitalization, Other)
  Sender: FDA-Public Use
  Company Number: 163-21880-11063101

PATIENT
  Age: 89 Year
  Sex: Male
  Weight: 72.5755 kg

DRUGS (10)
  1. ASPIRIN [Concomitant]
  2. TRAMADOL HCL [Concomitant]
  3. COLACE (DOCUSATE SODIUM) [Concomitant]
  4. SIMVASTATIN [Concomitant]
  5. ATENOLOL [Concomitant]
  6. REVLIMID [Suspect]
     Indication: MULTIPLE MYELOMA
     Dosage: 10 MG, DAILY FOR 21 DAYS, PO
     Route: 048
     Dates: start: 20110422
  7. PROSCAR [Concomitant]
  8. REQUIP [Concomitant]
  9. LANTUS [Concomitant]
  10. COUMADIN [Concomitant]

REACTIONS (5)
  - CARDIAC FAILURE CONGESTIVE [None]
  - GOUT [None]
  - COUGH [None]
  - GENERAL PHYSICAL HEALTH DETERIORATION [None]
  - ARRHYTHMIA [None]
